FAERS Safety Report 9253277 (Version 1)
Quarter: 2013Q2

REPORT INFORMATION
  Report Type: Spontaneous
  Country: US (occurrence: US)
  Receive Date: 20130424
  Receipt Date: 20130424
  Transmission Date: 20140414
  Serious: No
  Sender: FDA-Public Use
  Company Number: US-TEVA-400062USA

PATIENT
  Sex: Female

DRUGS (4)
  1. QNASL [Suspect]
     Dates: start: 201304
  2. PANATOL [Concomitant]
     Indication: ANTIALLERGIC THERAPY
  3. LIPITOR [Concomitant]
  4. LOSARTAN [Concomitant]

REACTIONS (1)
  - Burning sensation [Recovered/Resolved]
